FAERS Safety Report 7702150-0 (Version None)
Quarter: 2011Q3

REPORT INFORMATION
  Report Type: 
  Country: None (occurrence: None)
  Receive Date: 20110822
  Receipt Date: 20110628
  Transmission Date: 20111222
  Serious: No
  Sender: FDA-Public Use
  Company Number: US-BAYER-2011-066471

PATIENT
  Age: 56 Year
  Sex: Female

DRUGS (3)
  1. ULTRAVIST 150 [Suspect]
     Indication: COMPUTERISED TOMOGRAM
     Dosage: 100 ML, ONCE
     Route: 042
     Dates: start: 20110715, end: 20110715
  2. PREDNISONE [Concomitant]
     Indication: PREMEDICATION
     Dosage: DAILY DOSE 150 MG
     Route: 048
  3. BENADRYL [Concomitant]
     Indication: PREMEDICATION
     Dosage: UNK
     Route: 048
     Dates: start: 20110715, end: 20110715

REACTIONS (1)
  - DYSPNOEA [None]
